FAERS Safety Report 6865649-5 (Version None)
Quarter: 2010Q3

REPORT INFORMATION
  Report Type: 
  Country: None (occurrence: None)
  Receive Date: 20100721
  Receipt Date: 20080429
  Transmission Date: 20110219
  Serious: No
  Sender: FDA-Public Use
  Company Number: US-PFIZER INC-2008037974

PATIENT
  Sex: Female
  Weight: 125 kg

DRUGS (2)
  1. CHANTIX [Suspect]
     Indication: SMOKING CESSATION THERAPY
     Route: 048
     Dates: start: 20070301
  2. WELLBUTRIN [Interacting]
     Indication: DEPRESSION

REACTIONS (3)
  - DEPRESSION [None]
  - DRUG INTERACTION [None]
  - NEGATIVE THOUGHTS [None]
